FAERS Safety Report 26167344 (Version 1)
Quarter: 2025Q4

REPORT INFORMATION
  Report Type: Spontaneous
  Country: US (occurrence: US)
  Receive Date: 20251217
  Receipt Date: 20251217
  Transmission Date: 20260117
  Serious: No
  Sender: SANDOZ
  Company Number: US-SANDOZ-SDZ2025US094920

PATIENT
  Sex: Female

DRUGS (1)
  1. TAFLUPROST [Suspect]
     Active Substance: TAFLUPROST
     Indication: Product used for unknown indication
     Dosage: STRENGTH 15 MCG/1ML, 36?F TO 46?F (2?C TO  8?C).
     Route: 047

REACTIONS (3)
  - Erythema [Unknown]
  - Pruritus [Unknown]
  - Product storage error [Unknown]
